FAERS Safety Report 13833644 (Version 1)
Quarter: 2017Q3

REPORT INFORMATION
  Report Type: Spontaneous
  Country: US (occurrence: US)
  Receive Date: 20170803
  Receipt Date: 20170803
  Transmission Date: 20171127
  Serious: Yes (Other)
  Sender: FDA-Public Use
  Company Number: None

PATIENT
  Age: 52 Year
  Sex: Female

DRUGS (1)
  1. LETAIRIS [Suspect]
     Active Substance: AMBRISENTAN
     Indication: HEART DISEASE CONGENITAL
     Route: 048
     Dates: start: 20170626

REACTIONS (5)
  - Chest pain [None]
  - Pneumonia [None]
  - Atelectasis [None]
  - Drug hypersensitivity [None]
  - Hypotension [None]

NARRATIVE: CASE EVENT DATE: 20170703
